FAERS Safety Report 5347242-9 (Version None)
Quarter: 2007Q2

REPORT INFORMATION
  Report Type: 
  Country: None (occurrence: None)
  Receive Date: 20070606
  Receipt Date: 20070529
  Transmission Date: 20071010
  Serious: Yes (Death, Hospitalization)
  Sender: FDA-Public Use
  Company Number: PHBS2007US09016

PATIENT
  Age: 40 Year
  Sex: Male

DRUGS (3)
  1. CYCLOSPORINE [Suspect]
     Indication: RENAL AND PANCREAS TRANSPLANT
     Route: 065
  2. MYCOPHENOLATE MOFETIL [Suspect]
     Indication: RENAL AND PANCREAS TRANSPLANT
     Route: 065
  3. CORTICOSTEROIDS [Concomitant]
     Indication: RENAL AND PANCREAS TRANSPLANT

REACTIONS (9)
  - BLOOD CREATININE INCREASED [None]
  - DEATH [None]
  - LOCAL SWELLING [None]
  - LYMPHADENECTOMY [None]
  - POLYOMAVIRUS-ASSOCIATED NEPHROPATHY [None]
  - PYREXIA [None]
  - REMOVAL OF RENAL TRANSPLANT [None]
  - RENAL CELL CARCINOMA STAGE UNSPECIFIED [None]
  - RENAL IMPAIRMENT [None]
